FAERS Safety Report 22969601 (Version 9)
Quarter: 2024Q3

REPORT INFORMATION
  Report Type: Spontaneous
  Country: CA (occurrence: CA)
  Receive Date: 20230922
  Receipt Date: 20240923
  Transmission Date: 20241016
  Serious: Yes (Other)
  Sender: CELLTRION
  Company Number: CA-CELLTRION INC.-2023CA016615

PATIENT

DRUGS (10)
  1. INFLECTRA [Suspect]
     Active Substance: INFLIXIMAB-DYYB
     Indication: Crohn^s disease
     Dosage: 5 MG/KG, INDUCTION WEEKS AT 0, 2, 6, THEN MAINTENANCE EVERY 8 WEEKS
     Dates: start: 20230803
  2. INFLECTRA [Suspect]
     Active Substance: INFLIXIMAB-DYYB
     Dosage: 225 MG (5 MG/KG), INDUCTION WEEKS AT 0, 2, 6, THEN MAINTENANCE EVERY 8 WEEKS
     Dates: start: 20230816, end: 20230816
  3. INFLECTRA [Suspect]
     Active Substance: INFLIXIMAB-DYYB
     Dosage: 230 MG (5 MG/KG), INDUCTION WEEKS AT 0, 2, 6, THEN MAINTENANCE EVERY 8 WEEKS
     Dates: start: 20230914
  4. INFLECTRA [Suspect]
     Active Substance: INFLIXIMAB-DYYB
     Dosage: 225 MG (5 MG/KG), EVERY 8 WEEKS
     Dates: start: 20231108
  5. INFLECTRA [Suspect]
     Active Substance: INFLIXIMAB-DYYB
     Dosage: 240 MG (5 MG/KG), EVERY 8 WEEKS
     Dates: start: 20240201
  6. INFLECTRA [Suspect]
     Active Substance: INFLIXIMAB-DYYB
     Dosage: 255 MG (5 MG/KG), EVERY 8 WEEKS
     Dates: start: 20240328
  7. INFLECTRA [Suspect]
     Active Substance: INFLIXIMAB-DYYB
     Dosage: 245 MG (5 MG/KG), EVERY 8 WEEKS
     Dates: start: 20240523
  8. INFLECTRA [Suspect]
     Active Substance: INFLIXIMAB-DYYB
     Dosage: 245 MG, AFTER 7 WEEKS AND 6 DAYS (5 MG/KG, INDUCTION WEEKS 0, 2, 6 MAINTENANCE Q 8 WEEKS)
     Dates: start: 20240717
  9. INFLECTRA [Suspect]
     Active Substance: INFLIXIMAB-DYYB
     Dosage: 240 MG, 8 WEEKS (5 MG/KG, INDUCTION WEEKS 0, 2, 6 MAINTENANCE Q 8 WEEKS)
     Dates: start: 20240912
  10. PURINETHOL [Concomitant]
     Active Substance: MERCAPTOPURINE
     Dosage: 50 MG
     Route: 048
     Dates: start: 202110

REACTIONS (16)
  - Condition aggravated [Recovering/Resolving]
  - Uveitis [Recovered/Resolved]
  - Blood pressure fluctuation [Recovered/Resolved]
  - Anal fissure [Recovered/Resolved]
  - Nausea [Not Recovered/Not Resolved]
  - Fatigue [Not Recovered/Not Resolved]
  - Proctalgia [Not Recovered/Not Resolved]
  - Aphthous ulcer [Recovered/Resolved]
  - Arthralgia [Recovered/Resolved]
  - Migraine [Not Recovered/Not Resolved]
  - Frequent bowel movements [Unknown]
  - Cyst [Unknown]
  - Anal fistula [Unknown]
  - Decreased appetite [Unknown]
  - Constipation [Unknown]
  - Mucous stools [Unknown]

NARRATIVE: CASE EVENT DATE: 20230816
